FAERS Safety Report 7623555-2 (Version None)
Quarter: 2011Q3

REPORT INFORMATION
  Report Type: 
  Country: None (occurrence: None)
  Receive Date: 20110720
  Receipt Date: 20110711
  Transmission Date: 20111222
  Serious: Yes (Hospitalization)
  Sender: FDA-Public Use
  Company Number: US-EISAI INC-E7389-01302-SPO-US

PATIENT
  Age: 50 Year
  Sex: Female

DRUGS (1)
  1. HALAVEN [Suspect]
     Indication: BREAST CANCER
     Route: 041
     Dates: start: 20110614

REACTIONS (1)
  - SMALL INTESTINAL OBSTRUCTION [None]
